FAERS Safety Report 21477098 (Version 5)
Quarter: 2024Q3

REPORT INFORMATION
  Report Type: Report from Study
  Country: BE (occurrence: BE)
  Receive Date: 20221019
  Receipt Date: 20240807
  Transmission Date: 20241017
  Serious: Yes (Other)
  Sender: ROCHE
  Company Number: BE-SEATTLE GENETICS-2022SGN08981

PATIENT
  Age: 49 Year
  Sex: Female
  Weight: 62.8 kg

DRUGS (9)
  1. TRASTUZUMAB [Suspect]
     Active Substance: TRASTUZUMAB
     Indication: Breast cancer metastatic
     Dosage: 600 MG ON DAY 1 OF EVERY 21-DAY CYCLE
     Route: 065
     Dates: start: 20220616
  2. CAPECITABINE [Suspect]
     Active Substance: CAPECITABINE
     Indication: Breast cancer metastatic
     Dosage: 1000 MG/M2, BID DAYS 1-14 ONLY OF A 21-DAY CYCLE
     Route: 065
     Dates: start: 20220616
  3. CAPECITABINE [Suspect]
     Active Substance: CAPECITABINE
     Dosage: 1000 MG/M2, BID DAYS 1-14 ONLY OF A 21-DAY CYCLE
     Route: 065
  4. TUCATINIB [Suspect]
     Active Substance: TUCATINIB
     Indication: Breast cancer metastatic
     Dosage: 300 MG BID
     Route: 065
     Dates: start: 20220616
  5. TUCATINIB [Suspect]
     Active Substance: TUCATINIB
     Dosage: 300 MG BID
     Route: 065
     Dates: start: 20220616
  6. MEDROL [Concomitant]
     Active Substance: METHYLPREDNISOLONE
     Indication: Metastases to central nervous system
     Dosage: 8 MG/DAY
     Dates: start: 20220728
  7. MEDROL [Concomitant]
     Active Substance: METHYLPREDNISOLONE
     Dosage: 4 MG EVERY 2 DAYS
     Dates: start: 20220310, end: 20220727
  8. KEPPRA [Concomitant]
     Active Substance: LEVETIRACETAM
     Indication: Prophylaxis
     Dosage: 1000 MG/DAY
     Dates: start: 20211104
  9. PANTOPRAZOLE SODIUM [Concomitant]
     Active Substance: PANTOPRAZOLE SODIUM
     Indication: Prophylaxis
     Dosage: 20 MG/DAY
     Dates: start: 20211104

REACTIONS (3)
  - Hepatotoxicity [Unknown]
  - Platelet count decreased [Unknown]
  - Palmar-plantar erythrodysaesthesia syndrome [Unknown]

NARRATIVE: CASE EVENT DATE: 20220804
